FAERS Safety Report 21673422 (Version 1)
Quarter: 2022Q4

REPORT INFORMATION
  Report Type: Spontaneous
  Country: BE (occurrence: None)
  Receive Date: 20221202
  Receipt Date: 20221202
  Transmission Date: 20230113
  Serious: Yes (Hospitalization, Other)
  Sender: FDA-Public Use
  Company Number: 2022A388825

PATIENT
  Age: 75 Year
  Sex: Male

DRUGS (11)
  1. FASENRA [Suspect]
     Active Substance: BENRALIZUMAB
     Indication: Asthma late onset
     Dosage: 30MG BIMONTHLY1.0DF UNKNOWN
     Route: 058
     Dates: start: 20200804, end: 20210830
  2. ENTRESTO [Concomitant]
     Active Substance: SACUBITRIL\VALSARTAN
     Dosage: 97 MG/103 MG
  3. ALDACTONE [Concomitant]
     Active Substance: SPIRONOLACTONE
  4. EDOXABAN TOSYLATE [Concomitant]
     Active Substance: EDOXABAN TOSYLATE
  5. ALPRAZOLAM [Concomitant]
     Active Substance: ALPRAZOLAM
     Dosage: 1 CO IF NECESSARY
  6. BISOPROLOL [Concomitant]
     Active Substance: BISOPROLOL
  7. CORDARONE [Concomitant]
     Active Substance: AMIODARONE HYDROCHLORIDE
  8. MEDROL [Concomitant]
     Active Substance: METHYLPREDNISOLONE
     Dosage: PHASING-OUT SCHEDULE
  9. PANTOMED [Concomitant]
  10. FLUTICASONE FUROATE\VILANTEROL TRIFENATATE [Concomitant]
     Active Substance: FLUTICASONE FUROATE\VILANTEROL TRIFENATATE
     Dosage: 92 MICROGRAMS/22 MICROGRAMS
  11. BUMETANIDE [Concomitant]
     Active Substance: BUMETANIDE

REACTIONS (5)
  - Hyperreflexia [Recovering/Resolving]
  - Vomiting [Recovering/Resolving]
  - Cerebral nocardiosis [Recovering/Resolving]
  - Pulmonary nocardiosis [Recovering/Resolving]
  - Hemiataxia [Recovering/Resolving]

NARRATIVE: CASE EVENT DATE: 20210801
